FAERS Safety Report 17614719 (Version 1)
Quarter: 2020Q2

REPORT INFORMATION
  Report Type: Report from Study
  Country: BR (occurrence: BR)
  Receive Date: 20200402
  Receipt Date: 20200402
  Transmission Date: 20200713
  Serious: Yes (Other)
  Sender: FDA-Public Use
  Company Number: BR-BIOGEN-2019BI00779926

PATIENT
  Sex: Male

DRUGS (4)
  1. AVONEX PEN [Suspect]
     Active Substance: INTERFERON BETA-1A
  2. AVONEX PEN [Suspect]
     Active Substance: INTERFERON BETA-1A
  3. AVONEX PEN [Suspect]
     Active Substance: INTERFERON BETA-1A
  4. AVONEX PEN [Suspect]
     Active Substance: INTERFERON BETA-1A
     Indication: MULTIPLE SCLEROSIS
     Route: 030
     Dates: start: 2003

REACTIONS (11)
  - Depression [Recovered/Resolved]
  - Eye inflammation [Recovered/Resolved]
  - Insomnia [Recovered/Resolved]
  - Deafness transitory [Recovered/Resolved]
  - Suicidal ideation [Recovered/Resolved]
  - Drug ineffective [Recovered/Resolved]
  - Emotional poverty [Recovered/Resolved]
  - Multiple sclerosis relapse [Recovered/Resolved]
  - Blindness transient [Recovered/Resolved]
  - External ear inflammation [Recovered/Resolved]
  - Chills [Recovered/Resolved]
